FAERS Safety Report 16715431 (Version 2)
Quarter: 2019Q3

REPORT INFORMATION
  Report Type: Not Available
  Country: US (occurrence: US)
  Receive Date: 20190819
  Receipt Date: 20190926
  Transmission Date: 20191005
  Serious: No
  Sender: FDA-Public Use
  Company Number: US-NEUROCRINE BIOSCIENCES INC.-2019NBI02222

PATIENT
  Age: 50 Year
  Sex: Female

DRUGS (8)
  1. PAXIL [Concomitant]
     Active Substance: PAROXETINE HYDROCHLORIDE
     Indication: DEPRESSION
     Route: 048
  2. SEROQUEL [Concomitant]
     Active Substance: QUETIAPINE FUMARATE
     Indication: AFFECTIVE DISORDER
     Dosage: AT NIGHT
     Route: 048
  3. HALDOL [Concomitant]
     Active Substance: HALOPERIDOL
     Indication: PSYCHOTIC DISORDER
     Route: 048
  4. INGREZZA [Suspect]
     Active Substance: VALBENAZINE
     Indication: TARDIVE DYSKINESIA
     Route: 048
     Dates: start: 20190715, end: 20190717
  5. CLONAZEPAM. [Concomitant]
     Active Substance: CLONAZEPAM
     Indication: ANXIETY
     Route: 048
  6. BENADRYL [Concomitant]
     Active Substance: DIPHENHYDRAMINE HYDROCHLORIDE
     Route: 048
  7. SYNTHROID [Concomitant]
     Active Substance: LEVOTHYROXINE SODIUM
     Indication: HYPOTHYROIDISM
     Route: 048
  8. IRON [Concomitant]
     Active Substance: IRON
     Route: 048

REACTIONS (1)
  - Abdominal discomfort [Recovered/Resolved]

NARRATIVE: CASE EVENT DATE: 20190715
